FAERS Safety Report 9830401 (Version 2)
Quarter: 2014Q1

REPORT INFORMATION
  Report Type: Spontaneous
  Country: IT (occurrence: IT)
  Receive Date: 20140120
  Receipt Date: 20140123
  Transmission Date: 20141002
  Serious: Yes (Hospitalization)
  Sender: FDA-Public Use
  Company Number: IT-JNJFOC-20140106867

PATIENT
  Age: 60 Year
  Sex: Male

DRUGS (10)
  1. REMICADE [Suspect]
     Indication: RHEUMATOID ARTHRITIS
     Dosage: 3 MG/KG OF BODY WEIGHT, FREQUENCY REPORTED TO BE CYCLIC.
     Route: 042
     Dates: start: 20090526
  2. REMICADE [Suspect]
     Indication: RHEUMATOID ARTHRITIS
     Route: 042
     Dates: start: 20131031, end: 20131207
  3. METHOTREXATE [Concomitant]
     Indication: RHEUMATOID ARTHRITIS
     Route: 048
     Dates: start: 20030101
  4. KARVEZIDE [Concomitant]
     Dosage: 1/2 DOSE (UNIT)
     Route: 048
  5. LIMPIDEX [Concomitant]
     Dosage: 1 DOSE (UNIT)
     Route: 048
  6. FOLINA [Concomitant]
     Route: 048
  7. FOLINA [Concomitant]
     Route: 048
  8. VALIUM [Concomitant]
     Dosage: 10 DROPS
     Route: 048
  9. CARDIOASPIRIN [Concomitant]
     Dosage: 1 DOSE (1 UNIT)
     Route: 048
  10. CELEBREX [Concomitant]
     Route: 048

REACTIONS (1)
  - Acute myocardial infarction [Recovering/Resolving]
